FAERS Safety Report 15497888 (Version 1)
Quarter: 2018Q4

REPORT INFORMATION
  Report Type: Spontaneous
  Country: US (occurrence: US)
  Receive Date: 20181005
  Receipt Date: 20181005
  Transmission Date: 20190205
  Serious: Yes (Hospitalization)
  Sender: FDA-Public Use
  Company Number: None

PATIENT
  Age: 76 Year
  Sex: Female
  Weight: 70.31 kg

DRUGS (9)
  1. LORATADINE 10 MG [Concomitant]
     Active Substance: LORATADINE
  2. IRON 65 MG [Concomitant]
  3. OMEPRAZOLE DR 20MG [Concomitant]
  4. VIT D3 5000 IU [Concomitant]
  5. VALSARTAN TABS 320MG GENERIC FOR : DIOVAN TABS [Suspect]
     Active Substance: VALSARTAN
     Indication: HYPERTENSION
     Dosage: ?          QUANTITY:1 ;?
     Route: 048
     Dates: start: 20140212, end: 20180713
  6. PLAVIZ 75 MG [Concomitant]
  7. AMITRIPTYLINE 150 MG [Concomitant]
  8. B12 1000 MG [Concomitant]
  9. LOSARTAN POTASSIUM 100 MG [Concomitant]
     Active Substance: LOSARTAN POTASSIUM

REACTIONS (1)
  - Squamous cell carcinoma [None]

NARRATIVE: CASE EVENT DATE: 20160808
